FAERS Safety Report 9313509 (Version 1)
Quarter: 2013Q2

REPORT INFORMATION
  Report Type: Spontaneous
  Country: NL (occurrence: NL)
  Receive Date: 20130528
  Receipt Date: 20130528
  Transmission Date: 20140414
  Serious: Yes (Death, Other)
  Sender: FDA-Public Use
  Company Number: PHHY2013NL052627

PATIENT
  Sex: Female
  Weight: 80 kg

DRUGS (2)
  1. CYPROTERONE ACETATE+ETHINYLESTRADIOL [Suspect]
     Indication: HIRSUTISM
  2. TEMAZEPAM [Concomitant]

REACTIONS (2)
  - Pulmonary embolism [Fatal]
  - Pulmonary necrosis [Unknown]
